FAERS Safety Report 6335199-3 (Version None)
Quarter: 2009Q3

REPORT INFORMATION
  Report Type: 
  Country: None (occurrence: None)
  Receive Date: 20090828
  Receipt Date: 20090828
  Transmission Date: 20100115
  Serious: Yes (Hospitalization, Other)
  Sender: FDA-Public Use
  Company Number: None

PATIENT
  Age: 72 Year
  Sex: Female
  Weight: 78.4723 kg

DRUGS (2)
  1. SANCTURE ESP. ESPRIT PHARMA. [Suspect]
     Indication: BLADDER DISORDER
     Dosage: 20MG 1 TAB BID PO
     Route: 048
     Dates: start: 20090507, end: 20090515
  2. SANCTURE ESP. ESPRIT PHARMA. [Suspect]
     Indication: BLADDER DISORDER
     Dosage: 20MG 1 TAB BID PO
     Route: 048
     Dates: start: 20090601, end: 20090612

REACTIONS (13)
  - AGEUSIA [None]
  - BLOOD POTASSIUM DECREASED [None]
  - BOWEL MOVEMENT IRREGULARITY [None]
  - CONSTIPATION [None]
  - DEPRESSED LEVEL OF CONSCIOUSNESS [None]
  - DIVERTICULITIS [None]
  - DRY MOUTH [None]
  - EXTRASYSTOLES [None]
  - GASTRIC DISORDER [None]
  - HEART RATE INCREASED [None]
  - INTERNATIONAL NORMALISED RATIO INCREASED [None]
  - URINARY TRACT INFECTION [None]
  - VOMITING [None]
